FAERS Safety Report 8800872 (Version 1)
Quarter: 2012Q4

REPORT INFORMATION
  Report Type: 
  Country: US (occurrence: US)
  Receive Date: 20120921
  Receipt Date: 20120921
  Transmission Date: 20130627
  Serious: Yes (Hospitalization)
  Sender: FDA-Public Use
  Company Number: US-PFIZER INC-2012230871

PATIENT

DRUGS (1)
  1. VANCOMYCIN HCL [Suspect]
     Indication: STAPHYLOCOCCAL SEPSIS
     Dosage: 1000 mg, 1x/day
     Route: 042
     Dates: start: 20120831, end: 20120906

REACTIONS (1)
  - Drug level increased [Unknown]
